FAERS Safety Report 12953045 (Version 1)
Quarter: 2016Q4

REPORT INFORMATION
  Report Type: Spontaneous
  Country: US (occurrence: US)
  Receive Date: 20161117
  Receipt Date: 20161117
  Transmission Date: 20170207
  Serious: Yes (Other)
  Sender: FDA-Public Use
  Company Number: US-ROCHE-1852969

PATIENT
  Age: 81 Year
  Sex: Female

DRUGS (12)
  1. KEFLEX [Concomitant]
     Active Substance: CEPHALEXIN
     Route: 065
  2. ELMIRON [Concomitant]
     Active Substance: PENTOSAN POLYSULFATE SODIUM
  3. BONIVA [Suspect]
     Active Substance: IBANDRONATE SODIUM
     Indication: PRODUCT USED FOR UNKNOWN INDICATION
     Route: 065
  4. RENVELA [Concomitant]
     Active Substance: SEVELAMER CARBONATE
  5. PROLIA [Suspect]
     Active Substance: DENOSUMAB
     Indication: OSTEOPOROSIS POSTMENOPAUSAL
     Dosage: MOST RECENT GIVEN ON 21/DEC/2012
     Route: 065
     Dates: start: 20111214
  6. SPIRIVA [Concomitant]
     Active Substance: TIOTROPIUM BROMIDE MONOHYDRATE
     Route: 065
  7. VITAMIN C [Concomitant]
     Active Substance: ASCORBIC ACID
  8. ATENOLOL. [Concomitant]
     Active Substance: ATENOLOL
  9. LASIX [Concomitant]
     Active Substance: FUROSEMIDE
  10. PREVACID [Concomitant]
     Active Substance: LANSOPRAZOLE
  11. LEVOXYL [Concomitant]
     Active Substance: LEVOTHYROXINE SODIUM
  12. NORVASC [Concomitant]
     Active Substance: AMLODIPINE BESYLATE

REACTIONS (13)
  - Cataract [Unknown]
  - Body height decreased [Unknown]
  - Device failure [Unknown]
  - Macular degeneration [Unknown]
  - Musculoskeletal pain [Unknown]
  - Tooth extraction [Unknown]
  - Injection site pain [Unknown]
  - Glaucoma [Unknown]
  - Renal function test abnormal [Unknown]
  - Unevaluable investigation [Unknown]
  - Pain in extremity [Unknown]
  - Neck pain [Recovered/Resolved]
  - Paraesthesia [Unknown]

NARRATIVE: CASE EVENT DATE: 201201
